FAERS Safety Report 5804134-6 (Version None)
Quarter: 2008Q3

REPORT INFORMATION
  Report Type: 
  Country: None (occurrence: None)
  Receive Date: 20080702
  Receipt Date: 20070918
  Transmission Date: 20090109
  Serious: Yes (Other)
  Sender: FDA-Public Use
  Company Number: HQWYE264521SEP07

PATIENT
  Age: 48 Year
  Sex: Male
  Weight: 81.72 kg

DRUGS (1)
  1. IBUPROFEN TABLETS [Suspect]
     Indication: PAIN
     Dosage: 1-3 TABLETS AT BEDTIME AS NEEDED, ORAL
     Route: 047
     Dates: end: 20070301

REACTIONS (2)
  - INCORRECT DOSE ADMINISTERED [None]
  - URTICARIA [None]
